FAERS Safety Report 4423785-7 (Version None)
Quarter: 2004Q3

REPORT INFORMATION
  Report Type: 
  Country: None (occurrence: None)
  Receive Date: 20040811
  Receipt Date: 20040804
  Transmission Date: 20050211
  Serious: Yes (Hospitalization)
  Sender: FDA-Public Use
  Company Number: GB-MERCK-0408GBR00044

PATIENT
  Age: 42 Year
  Sex: Female

DRUGS (5)
  1. ACETAMINOPHEN AND ASPIRIN AND CAFFEINE [Concomitant]
     Route: 065
  2. FOSAMAX [Suspect]
     Route: 048
     Dates: end: 20040101
  3. DICLOFENAC [Concomitant]
     Route: 065
  4. MEFENAMIC ACID [Concomitant]
     Route: 065
  5. PREDNISOLONE [Concomitant]
     Route: 048

REACTIONS (2)
  - HAEMATEMESIS [None]
  - UPPER GASTROINTESTINAL HAEMORRHAGE [None]
